FAERS Safety Report 15594267 (Version 6)
Quarter: 2019Q1

REPORT INFORMATION
  Report Type: Spontaneous
  Country: US (occurrence: US)
  Receive Date: 20181106
  Receipt Date: 20190117
  Transmission Date: 20190417
  Serious: Yes (Other)
  Sender: FDA-Public Use
  Company Number: US-PFIZER INC-2018452514

PATIENT
  Age: 63 Year
  Sex: Female
  Weight: 55 kg

DRUGS (4)
  1. OXYCONTIN [Concomitant]
     Active Substance: OXYCODONE HYDROCHLORIDE
     Indication: PAIN
     Dosage: 30 MG, 2X/DAY [ONCE EVERY 12 HOURS]
  2. LYRICA [Suspect]
     Active Substance: PREGABALIN
     Indication: NEURALGIA
     Dosage: 150 MG, AS NEEDED (150 MG CAPSULE ONCE EVERY 12 HOURS AS NEEDED)
  3. LYRICA [Suspect]
     Active Substance: PREGABALIN
     Dosage: 150 MG, 2X/DAY (ONCE EVERY 12 HOURS BY MOUTH)
     Route: 048
  4. DILAUDID [Concomitant]
     Active Substance: HYDROMORPHONE HYDROCHLORIDE
     Indication: PAIN
     Dosage: 2 MG, 2X/DAY [2 MG PILL ONCE EVERY 12 HOURS]

REACTIONS (13)
  - Nervousness [Unknown]
  - Osteoporosis [Unknown]
  - Insomnia [Unknown]
  - Bone neoplasm [Unknown]
  - Muscle spasms [Unknown]
  - Hypersomnia [Unknown]
  - Malaise [Unknown]
  - Hypokinesia [Unknown]
  - Anxiety [Unknown]
  - Dolichocolon [Unknown]
  - Dysstasia [Unknown]
  - Eye disorder [Unknown]
  - Weight increased [Unknown]

NARRATIVE: CASE EVENT DATE: 20181018
